FAERS Safety Report 15101037 (Version 1)
Quarter: 2018Q2

REPORT INFORMATION
  Report Type: Spontaneous
  Country: US (occurrence: US)
  Receive Date: 20180611
  Receipt Date: 20180611
  Transmission Date: 20180711
  Serious: No
  Sender: FDA-Public Use
  Company Number: None

PATIENT
  Age: 35 Year
  Sex: Male

DRUGS (1)
  1. DAPTOMYCIN 500MG [Suspect]
     Active Substance: DAPTOMYCIN
     Indication: STAPHYLOCOCCAL INFECTION
     Route: 042
     Dates: start: 20180527, end: 20180605

REACTIONS (4)
  - Chills [None]
  - Influenza like illness [None]
  - Hypoaesthesia [None]
  - Lethargy [None]

NARRATIVE: CASE EVENT DATE: 20180605
